FAERS Safety Report 21255635 (Version 4)
Quarter: 2022Q3

REPORT INFORMATION
  Report Type: Spontaneous
  Country: US (occurrence: US)
  Receive Date: 20220825
  Receipt Date: 20220902
  Transmission Date: 20221027
  Serious: Yes (Hospitalization, Other)
  Sender: FDA-Public Use
  Company Number: US-MLMSERVICE-20220811-3729267-1

PATIENT
  Age: 30 Year
  Sex: Male

DRUGS (6)
  1. FENTANYL CITRATE [Suspect]
     Active Substance: FENTANYL CITRATE
     Dosage: 300 UG
     Route: 042
  2. BUPRENORPHINE [Suspect]
     Active Substance: BUPRENORPHINE
     Dosage: UNK
  3. FENTANYL CITRATE [Suspect]
     Active Substance: FENTANYL CITRATE
     Dosage: 10 DF, DAILY (SMOKING 10-12 ILLICIT TABLETS PER DAY)
  4. FENTANYL CITRATE [Suspect]
     Active Substance: FENTANYL CITRATE
     Dosage: 12 DF, DAILY (SMOKING 10-12 ILLICIT TABLETS PER DAY)
  5. METHAMPHETAMINE [Concomitant]
     Active Substance: METHAMPHETAMINE
     Dosage: UNCLEAR AMOUNT, BY SMOKING
  6. ALPRAZOLAM [Concomitant]
     Active Substance: ALPRAZOLAM
     Dosage: BARS
     Route: 048

REACTIONS (2)
  - Drug withdrawal syndrome [Unknown]
  - Agitation [Unknown]
